FAERS Safety Report 15583483 (Version 2)
Quarter: 2018Q4

REPORT INFORMATION
  Report Type: Spontaneous
  Country: US (occurrence: US)
  Receive Date: 20181105
  Receipt Date: 20181208
  Transmission Date: 20190205
  Serious: Yes (Hospitalization)
  Sender: FDA-Public Use
  Company Number: US-ROCHE-2208792

PATIENT
  Age: 22 Year
  Sex: Female

DRUGS (2)
  1. PULMOZYME [Suspect]
     Active Substance: DORNASE ALFA
     Indication: PRODUCT USED FOR UNKNOWN INDICATION
     Dosage: 1 MG/ML AMP
     Route: 065
     Dates: start: 20171128
  2. PULMOZYME [Suspect]
     Active Substance: DORNASE ALFA
     Dosage: 1 MG/ML AMP
     Route: 065
     Dates: start: 20180130

REACTIONS (2)
  - Cystic fibrosis [Unknown]
  - Rhinovirus infection [Unknown]

NARRATIVE: CASE EVENT DATE: 20181006
